FAERS Safety Report 5790329-7 (Version None)
Quarter: 2008Q2

REPORT INFORMATION
  Report Type: 
  Country: None (occurrence: None)
  Receive Date: 20080626
  Receipt Date: 20080227
  Transmission Date: 20081010
  Serious: No
  Sender: FDA-Public Use
  Company Number: A0708640A

PATIENT

DRUGS (1)
  1. ALLI [Suspect]

REACTIONS (8)
  - ANXIETY [None]
  - DEPRESSED MOOD [None]
  - EMOTIONAL DISORDER [None]
  - FATIGUE [None]
  - IRRITABILITY [None]
  - MOOD SWINGS [None]
  - NERVOUSNESS [None]
  - THERAPEUTIC RESPONSE UNEXPECTED [None]
